FAERS Safety Report 10728747 (Version 1)
Quarter: 2015Q1

REPORT INFORMATION
  Report Type: Spontaneous
  Country: US (occurrence: None)
  Receive Date: 20150120
  Receipt Date: 20150120
  Transmission Date: 20150721
  Serious: Yes (Life-Threatening, Hospitalization)
  Sender: FDA-Public Use
  Company Number: None

PATIENT
  Age: 35 Year
  Sex: Female
  Weight: 66.6 kg

DRUGS (4)
  1. LORAZEPAM. [Concomitant]
     Active Substance: LORAZEPAM
  2. OLANZAPINE. [Concomitant]
     Active Substance: OLANZAPINE
  3. ETONOGESTREL 68 MG [Suspect]
     Active Substance: ETONOGESTREL
     Indication: CONTRACEPTION
     Dosage: 1 ONCE IMPLANT
  4. FLUOXETINE [Concomitant]
     Active Substance: FLUOXETINE\FLUOXETINE HYDROCHLORIDE

REACTIONS (4)
  - Atrial flutter [None]
  - Palpitations [None]
  - Pulmonary embolism [None]
  - Supraventricular tachycardia [None]

NARRATIVE: CASE EVENT DATE: 20140814
